FAERS Safety Report 4802468-5 (Version None)
Quarter: 2005Q4

REPORT INFORMATION
  Report Type: 
  Country: None (occurrence: None)
  Receive Date: 20051011
  Receipt Date: 20050928
  Transmission Date: 20060501
  Serious: Yes (Other)
  Sender: FDA-Public Use
  Company Number: 2005136040

PATIENT
  Age: 77 Year
  Sex: Male
  Weight: 74.8435 kg

DRUGS (2)
  1. VIAGRA [Suspect]
     Indication: ERECTILE DYSFUNCTION
     Dosage: (25 MG)
  2. ASPIRIN [Concomitant]

REACTIONS (2)
  - POOR QUALITY DRUG ADMINISTERED [None]
  - PROSTATE CANCER [None]
